FAERS Safety Report 7803803-6 (Version None)
Quarter: 2011Q4

REPORT INFORMATION
  Report Type: 
  Country: None (occurrence: None)
  Receive Date: 20111010
  Receipt Date: 20110927
  Transmission Date: 20120403
  Serious: Yes (Other)
  Sender: FDA-Public Use
  Company Number: US-ELI_LILLY_AND_COMPANY-US201109008302

PATIENT
  Sex: Male

DRUGS (4)
  1. CARDIAC THERAPY [Concomitant]
     Dosage: UNK
  2. HUMULIN 70/30 [Suspect]
     Indication: DIABETES MELLITUS
     Dosage: UNK, UNKNOWN
     Route: 065
  3. ORAL ANTIDIABETICS [Concomitant]
     Dosage: UNK
  4. HUMALOG [Suspect]
     Indication: DIABETES MELLITUS
     Dosage: UNK, UNKNOWN
     Route: 065

REACTIONS (9)
  - AMPUTATION [None]
  - ANXIETY [None]
  - CARDIAC FAILURE [None]
  - DIABETIC RETINOPATHY [None]
  - BIPOLAR DISORDER [None]
  - POOR PERIPHERAL CIRCULATION [None]
  - DIABETIC NEUROPATHY [None]
  - MENTAL DISORDER [None]
  - RENAL FAILURE [None]
